FAERS Safety Report 7531655-0 (Version None)
Quarter: 2011Q2

REPORT INFORMATION
  Report Type: 
  Country: None (occurrence: None)
  Receive Date: 20110608
  Receipt Date: 20110525
  Transmission Date: 20111010
  Serious: Yes (Hospitalization)
  Sender: FDA-Public Use
  Company Number: JP-BAYER-201014227BYL

PATIENT
  Age: 26 Year
  Sex: Male
  Weight: 60 kg

DRUGS (2)
  1. CORTICOSTEROIDS [Concomitant]
     Indication: MULTIPLE SCLEROSIS
     Route: 042
  2. BETASERON [Suspect]
     Indication: MULTIPLE SCLEROSIS
     Dosage: FOR MORE THAN  2 YEARS
     Route: 058

REACTIONS (1)
  - HISTIOCYTOSIS HAEMATOPHAGIC [None]
